FAERS Safety Report 7075757 (Version 45)
Quarter: 2016Q2

REPORT INFORMATION
  Report Type: Spontaneous
  Country: CA (occurrence: CA)
  Receive Date: 20090807
  Receipt Date: 20160613
  Transmission Date: 20160815
  Serious: Yes (Other)
  Sender: FDA-Public Use
  Company Number: CA-ROCHE-GNE287911

PATIENT
  Age: 60 Year
  Sex: Female

DRUGS (27)
  1. XOLAIR [Suspect]
     Active Substance: OMALIZUMAB
     Indication: ASTHMA
     Route: 058
     Dates: start: 20090422
  2. XOLAIR [Suspect]
     Active Substance: OMALIZUMAB
     Route: 058
     Dates: start: 20160421
  3. SINGULAIR [Concomitant]
     Active Substance: MONTELUKAST SODIUM
  4. OMEPRAZOLE. [Concomitant]
     Active Substance: OMEPRAZOLE
  5. ADVAIR HFA [Concomitant]
     Active Substance: FLUTICASONE PROPIONATE\SALMETEROL XINAFOATE
  6. XOLAIR [Suspect]
     Active Substance: OMALIZUMAB
     Route: 058
     Dates: start: 20091214
  7. XOLAIR [Suspect]
     Active Substance: OMALIZUMAB
     Route: 058
     Dates: start: 20130211
  8. XOLAIR [Suspect]
     Active Substance: OMALIZUMAB
     Route: 058
     Dates: start: 20130325
  9. XOLAIR [Suspect]
     Active Substance: OMALIZUMAB
     Route: 058
     Dates: start: 20160519
  10. FLUTICASONE [Concomitant]
     Active Substance: FLUTICASONE\FLUTICASONE PROPIONATE
  11. CIPRALEX [Concomitant]
     Active Substance: ESCITALOPRAM OXALATE
  12. SALBUTAMOL [Concomitant]
     Active Substance: ALBUTEROL
  13. PREDNISONE. [Concomitant]
     Active Substance: PREDNISONE
     Dosage: FOR 2 DAY
     Route: 065
  14. XOLAIR [Suspect]
     Active Substance: OMALIZUMAB
     Route: 058
     Dates: start: 20141030
  15. LASIX [Concomitant]
     Active Substance: FUROSEMIDE
  16. THEOPHYLLINE [Concomitant]
     Active Substance: THEOPHYLLINE ANHYDROUS
  17. PREDNISONE. [Concomitant]
     Active Substance: PREDNISONE
     Dosage: FOR 2 DAYS
     Route: 065
  18. XOLAIR [Suspect]
     Active Substance: OMALIZUMAB
     Route: 058
     Dates: start: 20130506
  19. PREDNISONE. [Concomitant]
     Active Substance: PREDNISONE
     Indication: PRODUCT USED FOR UNKNOWN INDICATION
     Route: 065
  20. TRAZODONE [Concomitant]
     Active Substance: TRAZODONE HYDROCHLORIDE
  21. MICARDIS [Concomitant]
     Active Substance: TELMISARTAN
  22. PREDNISONE. [Concomitant]
     Active Substance: PREDNISONE
     Route: 065
     Dates: start: 20131016
  23. ALVESCO [Concomitant]
     Active Substance: CICLESONIDE
  24. XOLAIR [Suspect]
     Active Substance: OMALIZUMAB
     Route: 058
     Dates: start: 20090908
  25. XOLAIR [Suspect]
     Active Substance: OMALIZUMAB
     Route: 058
     Dates: start: 20130909
  26. OXYGEN. [Concomitant]
     Active Substance: OXYGEN
  27. ALENDRONATE [Concomitant]
     Active Substance: ALENDRONATE SODIUM

REACTIONS (47)
  - Hypoaesthesia oral [Unknown]
  - Hypertension [Unknown]
  - Contusion [Unknown]
  - Nasopharyngitis [Recovering/Resolving]
  - Productive cough [Recovered/Resolved]
  - Dyspnoea [Unknown]
  - Lower respiratory tract infection bacterial [Recovering/Resolving]
  - Pulmonary congestion [Recovered/Resolved]
  - Sleep apnoea syndrome [Unknown]
  - Oropharyngeal pain [Recovered/Resolved]
  - Infective exacerbation of chronic obstructive airways disease [Recovering/Resolving]
  - Sinusitis [Not Recovered/Not Resolved]
  - Facial pain [Unknown]
  - Syncope [Recovered/Resolved]
  - Weight increased [Unknown]
  - Headache [Recovered/Resolved]
  - Sputum discoloured [Recovered/Resolved]
  - Chills [Not Recovered/Not Resolved]
  - Asthma [Recovered/Resolved]
  - Accident at home [Unknown]
  - Pain in extremity [Recovered/Resolved]
  - Weight decreased [Unknown]
  - Lung infection [Unknown]
  - Gastrooesophageal reflux disease [Unknown]
  - Fall [Unknown]
  - Influenza [Unknown]
  - Heart rate abnormal [Unknown]
  - Ear discomfort [Unknown]
  - Wheezing [Recovered/Resolved]
  - Rhinorrhoea [Recovering/Resolving]
  - Insomnia [Unknown]
  - Otorrhoea [Unknown]
  - Dysgeusia [Unknown]
  - Cataract [Unknown]
  - Injection site pain [Unknown]
  - Sinus headache [Unknown]
  - Hypoacusis [Unknown]
  - Dyspnoea exertional [Recovered/Resolved]
  - Ligament sprain [Recovering/Resolving]
  - Viral infection [Unknown]
  - Vocal cord thickening [Recovered/Resolved]
  - Haematoma [Unknown]
  - Arthritis [Not Recovered/Not Resolved]
  - Body temperature increased [Unknown]
  - Dysphonia [Recovering/Resolving]
  - Nasal congestion [Unknown]
  - Joint injury [Unknown]

NARRATIVE: CASE EVENT DATE: 201201
